FAERS Safety Report 8509028-3 (Version None)
Quarter: 2012Q3

REPORT INFORMATION
  Report Type: 
  Country: None (occurrence: None)
  Receive Date: 20120713
  Receipt Date: 20120710
  Transmission Date: 20120928
  Serious: Yes (Life-Threatening, Hospitalization)
  Sender: FDA-Public Use
  Company Number: DE-MSD-1207DEU002550

PATIENT

DRUGS (3)
  1. METFORMIN HCL [Suspect]
     Indication: TYPE 2 DIABETES MELLITUS
     Dosage: 1000 MG, BID
     Route: 048
     Dates: start: 20090109, end: 20120203
  2. METOPROLOL TARTRATE [Concomitant]
     Indication: HYPERTENSION
     Dosage: 1 DF, QD
     Route: 048
     Dates: start: 20070101
  3. LEVOTHYROXINE SODIUM [Concomitant]
     Indication: GOITRE
     Dosage: 1 DF, QD
     Route: 048
     Dates: start: 20070101

REACTIONS (1)
  - THYROID CANCER [None]
